FAERS Safety Report 9494515 (Version 1)
Quarter: 2013Q3

REPORT INFORMATION
  Report Type: Spontaneous
  Country: FR (occurrence: FR)
  Receive Date: 20130903
  Receipt Date: 20130903
  Transmission Date: 20140515
  Serious: Yes (Hospitalization, Other)
  Sender: FDA-Public Use
  Company Number: FR-PFIZER INC-2013252631

PATIENT
  Age: 81 Year
  Sex: Female

DRUGS (9)
  1. CORDARONE [Suspect]
     Indication: TRANSIENT ISCHAEMIC ATTACK
     Dosage: 200 MG, DAILY
     Route: 048
     Dates: start: 201106
  2. ISOPTINE [Suspect]
     Indication: TRANSIENT ISCHAEMIC ATTACK
     Dosage: 40 MG, 3X/DAY
     Route: 048
     Dates: start: 201106
  3. FLUDEX [Concomitant]
     Dosage: UNK
  4. DIAMICRON [Concomitant]
     Dosage: UNK
  5. INEXIUM [Concomitant]
     Dosage: UNK
  6. KARDEGIC [Concomitant]
     Dosage: UNK
  7. PREVISCAN [Concomitant]
     Dosage: UNK
  8. SPECIAFOLDINE [Concomitant]
     Dosage: UNK
  9. STILNOX [Concomitant]
     Dosage: UNK

REACTIONS (4)
  - Cardiogenic shock [Recovered/Resolved]
  - Bradycardia [Unknown]
  - Acute respiratory distress syndrome [Unknown]
  - Sick sinus syndrome [Unknown]
